FAERS Safety Report 4845923-4 (Version None)
Quarter: 2005Q4

REPORT INFORMATION
  Report Type: 
  Country: None (occurrence: None)
  Receive Date: 20051206
  Receipt Date: 20051128
  Transmission Date: 20060501
  Serious: Yes (Life-Threatening)
  Sender: FDA-Public Use
  Company Number: AU-BRISTOL-MYERS SQUIBB COMPANY-13195185

PATIENT
  Age: 66 Year
  Sex: Male

DRUGS (3)
  1. IRBESARTAN [Suspect]
     Route: 048
     Dates: end: 20041222
  2. DICLOXACILLIN SODIUM [Suspect]
     Route: 042
     Dates: start: 20041216, end: 20041217
  3. KEFLIN [Concomitant]
     Route: 042
     Dates: start: 20041211, end: 20041215

REACTIONS (2)
  - NEPHRITIS INTERSTITIAL [None]
  - RENAL FAILURE ACUTE [None]
